FAERS Safety Report 16726851 (Version 3)
Quarter: 2020Q2

REPORT INFORMATION
  Report Type: Spontaneous
  Country: US (occurrence: US)
  Receive Date: 20190821
  Receipt Date: 20200504
  Transmission Date: 20200713
  Serious: Yes (Hospitalization, Other)
  Sender: FDA-Public Use
  Company Number: US-AKCEA THERAPEUTICS-2019IS001653

PATIENT

DRUGS (1)
  1. TEGSEDI [Suspect]
     Active Substance: INOTERSEN SODIUM
     Indication: HEREDITARY NEUROPATHIC AMYLOIDOSIS
     Dosage: 284 MG, QW
     Route: 058

REACTIONS (11)
  - Hemiparaesthesia [Unknown]
  - Blood creatinine increased [Recovered/Resolved]
  - White matter lesion [Unknown]
  - Chest pain [Unknown]
  - Renal impairment [Recovered/Resolved]
  - Cerebrovascular accident [Recovered/Resolved]
  - Cerebellar infarction [Unknown]
  - Headache [Unknown]
  - Cerebral ischaemia [Unknown]
  - Magnetic resonance imaging brain abnormal [Unknown]
  - Glomerular filtration rate decreased [Recovered/Resolved]

NARRATIVE: CASE EVENT DATE: 20190730
